FAERS Safety Report 8711191 (Version 3)
Quarter: 2013Q1

REPORT INFORMATION
  Report Type: Spontaneous
  Country: US (occurrence: US)
  Receive Date: 20120807
  Receipt Date: 20130314
  Transmission Date: 20140127
  Serious: Yes (Other)
  Sender: FDA-Public Use
  Company Number: US-PFIZER INC-2012187431

PATIENT
  Age: 49 Year
  Sex: Female

DRUGS (3)
  1. RELPAX [Suspect]
     Dosage: UNK
  2. IMITREX [Suspect]
     Dosage: UNK
  3. ZOMIG [Suspect]
     Dosage: UNK

REACTIONS (3)
  - Supraventricular tachycardia [Unknown]
  - Drug hypersensitivity [Unknown]
  - Migraine [Unknown]
